FAERS Safety Report 10205043 (Version 1)
Quarter: 2014Q2

REPORT INFORMATION
  Report Type: Spontaneous
  Country: US (occurrence: None)
  Receive Date: 20140527
  Receipt Date: 20140527
  Transmission Date: 20141212
  Serious: Yes (Hospitalization, Other)
  Sender: FDA-Public Use
  Company Number: UTC-047452

PATIENT
  Age: 80 Year
  Sex: Female
  Weight: 60.8 kg

DRUGS (3)
  1. REMODULIN [Suspect]
     Indication: PULMONARY ARTERIAL HYPERTENSION
     Dates: start: 20070430
  2. REMODULIN [Suspect]
     Indication: PULMONARY ARTERIAL HYPERTENSION
     Dates: start: 20070430
  3. LETAIRIS (AMBRISENTAN) [Concomitant]

REACTIONS (3)
  - Bronchitis [None]
  - Unevaluable event [None]
  - Blood disorder [None]
